FAERS Safety Report 4927212-2 (Version None)
Quarter: 2006Q1

REPORT INFORMATION
  Report Type: 
  Country: None (occurrence: None)
  Receive Date: 20060228
  Receipt Date: 20050124
  Transmission Date: 20060701
  Serious: No
  Sender: FDA-Public Use
  Company Number: US-GLAXOSMITHKLINE-A0542702A

PATIENT
  Sex: Female

DRUGS (2)
  1. IMITREX [Suspect]
     Indication: MIGRAINE
     Route: 065
     Dates: start: 20050114
  2. AVONEX [Concomitant]

REACTIONS (3)
  - DRY MOUTH [None]
  - GLOSSODYNIA [None]
  - SALIVARY HYPERSECRETION [None]
